FAERS Safety Report 9206114 (Version 1)
Quarter: 2013Q2

REPORT INFORMATION
  Report Type: Spontaneous
  Country: US (occurrence: US)
  Receive Date: 20130403
  Receipt Date: 20130403
  Transmission Date: 20140414
  Serious: No
  Sender: FDA-Public Use
  Company Number: US-BAYER-2013-029972

PATIENT
  Age: 52 Year
  Sex: Female

DRUGS (5)
  1. CIPRO [Suspect]
  2. LYRICA [Concomitant]
     Dosage: 100 MG, Q 8 HOURS
  3. FIBER [Concomitant]
  4. STOOL SOFTENER [Concomitant]
     Dosage: UNK UNK, PRN
  5. ALVES [Concomitant]
     Dosage: UNK UNK, PRN

REACTIONS (1)
  - Drug hypersensitivity [None]
